FAERS Safety Report 13258951 (Version 1)
Quarter: 2017Q1

REPORT INFORMATION
  Report Type: Spontaneous
  Country: JP (occurrence: JP)
  Receive Date: 20170222
  Receipt Date: 20170222
  Transmission Date: 20170428
  Serious: Yes (Other)
  Sender: FDA-Public Use
  Company Number: JP-ROCHE-1895994

PATIENT
  Age: 65 Year
  Sex: Female
  Weight: 40 kg

DRUGS (10)
  1. ACTEMRA [Suspect]
     Active Substance: TOCILIZUMAB
     Indication: RHEUMATOID ARTHRITIS
     Route: 041
     Dates: start: 20160712, end: 20170105
  2. ADALAT CC [Concomitant]
     Active Substance: NIFEDIPINE
     Route: 065
     Dates: start: 20141117
  3. NEXIUM [Concomitant]
     Active Substance: ESOMEPRAZOLE MAGNESIUM
     Route: 065
     Dates: start: 20150702
  4. MUCOSTA [Concomitant]
     Active Substance: REBAMIPIDE
     Route: 065
  5. RHEUMATREX [Concomitant]
     Active Substance: METHOTREXATE SODIUM
     Route: 065
  6. LENDORMIN [Concomitant]
     Active Substance: BROTIZOLAM
     Route: 065
  7. VOLTAREN [Concomitant]
     Active Substance: DICLOFENAC SODIUM
     Route: 065
  8. ONEALFA [Concomitant]
     Active Substance: ALFACALCIDOL
     Route: 065
  9. ERYTHROCIN [Concomitant]
     Active Substance: ERYTHROMYCIN LACTOBIONATE
     Route: 065
     Dates: start: 20140902
  10. PREDNISOLONE. [Concomitant]
     Active Substance: PREDNISOLONE
     Route: 065

REACTIONS (2)
  - Pulmonary cavitation [Not Recovered/Not Resolved]
  - Lung infection [Not Recovered/Not Resolved]

NARRATIVE: CASE EVENT DATE: 20170105
